FAERS Safety Report 5091339-8 (Version None)
Quarter: 2006Q3

REPORT INFORMATION
  Report Type: 
  Country: None (occurrence: None)
  Receive Date: 20060829
  Receipt Date: 20060228
  Transmission Date: 20061208
  Serious: No
  Sender: FDA-Public Use
  Company Number: US-GLAXOSMITHKLINE-A0595533A

PATIENT
  Age: 66 Year
  Sex: Male

DRUGS (13)
  1. BECONASE [Suspect]
     Dosage: 2SPR PER DAY
     Route: 045
  2. ASPIRIN [Concomitant]
  3. GLIPIZIDE [Concomitant]
  4. NEXIUM [Concomitant]
  5. LIPITOR [Concomitant]
  6. FUROSEMIDE [Concomitant]
  7. COREG [Concomitant]
  8. PAROXETINE HCL [Concomitant]
  9. AMITRIPTYLINE HCL [Concomitant]
  10. CLARINEX [Concomitant]
  11. ULTRACET [Concomitant]
  12. DETROL [Concomitant]
  13. LUNESTA [Concomitant]

REACTIONS (2)
  - PHARMACEUTICAL PRODUCT COMPLAINT [None]
  - RHINALGIA [None]
